FAERS Safety Report 8925506 (Version 2)
Quarter: 2014Q2

REPORT INFORMATION
  Report Type: Spontaneous
  Country: US (occurrence: US)
  Receive Date: 20121126
  Receipt Date: 20140512
  Transmission Date: 20141212
  Serious: Yes (Other)
  Sender: FDA-Public Use
  Company Number: US-BAYER-2012-120099

PATIENT
  Age: 36 Year
  Sex: Female

DRUGS (8)
  1. YAZ [Suspect]
  2. YASMIN [Suspect]
  3. CHANTIX [Concomitant]
     Dosage: UNK
     Dates: start: 20080416
  4. PRILOSEC [Concomitant]
     Dosage: UNK
     Dates: start: 20080416
  5. ALEVE [Concomitant]
     Dosage: UNK
     Dates: start: 20080525
  6. TRIPTAN [Concomitant]
  7. CLOBETASOL [Concomitant]
     Dosage: 0.05 UNK, UNK
  8. PREVACID [Concomitant]
     Dosage: 30 MG, UNK
     Dates: start: 20080429, end: 20080601

REACTIONS (1)
  - Cerebrovascular accident [None]
